FAERS Safety Report 20486639 (Version 2)
Quarter: 2022Q1

REPORT INFORMATION
  Report Type: Spontaneous
  Country: US (occurrence: US)
  Receive Date: 20220217
  Receipt Date: 20220318
  Transmission Date: 20220424
  Serious: Yes (Other)
  Sender: FDA-Public Use
  Company Number: US-CATALYST PHARMACEUTICALS, INC-2022CAT00065

PATIENT
  Sex: Female
  Weight: 92.986 kg

DRUGS (4)
  1. FIRDAPSE [Suspect]
     Active Substance: AMIFAMPRIDINE PHOSPHATE
     Indication: Myasthenic syndrome
     Dosage: TWO TABLETS (20 MG), 3X/DAY
     Route: 048
  2. AQUASOFT HYPERCHLORIDE [Concomitant]
     Dosage: ONE SPRAY ON EYELID
  3. DICLOFENAC SODIUM [Concomitant]
     Active Substance: DICLOFENAC SODIUM
  4. LIDOCAINE [Concomitant]
     Active Substance: LIDOCAINE
     Dosage: AT NIGHT

REACTIONS (1)
  - Intraductal proliferative breast lesion [Not Recovered/Not Resolved]
